FAERS Safety Report 17193943 (Version 2)
Quarter: 2019Q4

REPORT INFORMATION
  Report Type: Spontaneous
  Country: FR (occurrence: FR)
  Receive Date: 20191223
  Receipt Date: 20191226
  Transmission Date: 20200122
  Serious: Yes (Hospitalization)
  Sender: FDA-Public Use
  Company Number: FR-MYLANLABS-2019M1126238

PATIENT
  Age: 28 Year
  Sex: Male
  Weight: 90 kg

DRUGS (7)
  1. IMOVANE [Suspect]
     Active Substance: ZOPICLONE
     Indication: BEHAVIOUR DISORDER
     Dosage: SI BESOIN (1 LE SOIR)
     Route: 048
     Dates: start: 20190215
  2. DEPAMIDE [Suspect]
     Active Substance: VALPROMIDE
     Indication: PERSONALITY DISORDER
     Dosage: 2-1-2
     Route: 048
     Dates: start: 2017, end: 20190703
  3. CLOZAPINE MYLAN 100 MG, COMPRIM? S?CABLE [Suspect]
     Active Substance: CLOZAPINE
     Indication: IMPULSE-CONTROL DISORDER
     Dosage: 2-0-2
     Route: 048
     Dates: start: 20180117, end: 20190730
  4. SERTRALINE ARROW [Suspect]
     Active Substance: SERTRALINE HYDROCHLORIDE
     Indication: LIBIDO DISORDER
     Dosage: 0-0-3
     Route: 048
     Dates: start: 20190629
  5. LEVOTHYROX [Concomitant]
     Active Substance: LEVOTHYROXINE
     Indication: HYPOTHYROIDISM
     Dosage: 1-0-0
     Route: 048
  6. DEPAKOTE [Suspect]
     Active Substance: DIVALPROEX SODIUM
     Indication: PERSONALITY DISORDER
     Dosage: 1-1/2-1
     Route: 048
     Dates: start: 20190704, end: 20190730
  7. LOXAPAC                            /00401801/ [Suspect]
     Active Substance: LOXAPINE
     Indication: IMPULSE-CONTROL DISORDER
     Dosage: SI BESOIN (1 LE SOIR)
     Route: 048
     Dates: start: 20170802

REACTIONS (3)
  - Seizure [Recovered/Resolved]
  - Loss of consciousness [Recovered/Resolved]
  - Encephalopathy [Recovered/Resolved]

NARRATIVE: CASE EVENT DATE: 20190729
